FAERS Safety Report 5809072-0 (Version None)
Quarter: 2008Q3

REPORT INFORMATION
  Report Type: 
  Country: None (occurrence: None)
  Receive Date: 20080711
  Receipt Date: 20080711
  Transmission Date: 20090109
  Serious: Yes (Hospitalization, Other)
  Sender: FDA-Public Use
  Company Number: None

PATIENT
  Age: 31 Year
  Sex: Male
  Weight: 90.7194 kg

DRUGS (1)
  1. TEMODAR [Suspect]
     Indication: BRAIN NEOPLASM MALIGNANT
     Dosage: 100MG ONCE DAILY PO
     Route: 048
     Dates: start: 20080201, end: 20080601

REACTIONS (2)
  - FUNGAL INFECTION [None]
  - MUSCLE DISORDER [None]
